FAERS Safety Report 12745926 (Version 1)
Quarter: 2016Q3

REPORT INFORMATION
  Report Type: Spontaneous
  Country: IT (occurrence: BR)
  Receive Date: 20160915
  Receipt Date: 20160915
  Transmission Date: 20161109
  Serious: Yes (Hospitalization)
  Sender: FDA-Public Use
  Company Number: BR-FRI-1000087416

PATIENT
  Age: 82 Year
  Sex: Male
  Weight: 68 kg

DRUGS (2)
  1. GALVUS MET [Concomitant]
     Active Substance: METFORMIN HYDROCHLORIDE\VILDAGLIPTIN
  2. NEBIVOLOL. [Suspect]
     Active Substance: NEBIVOLOL
     Indication: HYPERTENSION
     Dosage: 0.5 DF
     Route: 048

REACTIONS (1)
  - Suicide attempt [Unknown]

NARRATIVE: CASE EVENT DATE: 20160821
